FAERS Safety Report 4439768-7 (Version None)
Quarter: 2004Q3

REPORT INFORMATION
  Report Type: 
  Country: None (occurrence: None)
  Receive Date: 20040831
  Receipt Date: 20040825
  Transmission Date: 20050211
  Serious: Yes (Hospitalization)
  Sender: FDA-Public Use
  Company Number: TPA2004A00862

PATIENT
  Age: 78 Year
  Sex: Female
  Weight: 86.637 kg

DRUGS (3)
  1. ACTOS [Suspect]
     Indication: DIABETES MELLITUS NON-INSULIN-DEPENDENT
     Dosage: 30 MG, 1 IN 1 D, PER ORAL
     Route: 048
     Dates: start: 20010101
  2. LIPITOR [Concomitant]
  3. TOPROL-XL [Concomitant]

REACTIONS (1)
  - CAROTID ARTERY OCCLUSION [None]
